FAERS Safety Report 23430929 (Version 1)
Quarter: 2024Q1

REPORT INFORMATION
  Report Type: Spontaneous
  Country: CA (occurrence: CA)
  Receive Date: 20240123
  Receipt Date: 20240123
  Transmission Date: 20240410
  Serious: Yes (Other)
  Sender: FDA-Public Use
  Company Number: CA-SA-SAC20240117000589

PATIENT
  Age: 67 Year
  Sex: Male

DRUGS (20)
  1. METFORMIN HYDROCHLORIDE [Suspect]
     Active Substance: METFORMIN HYDROCHLORIDE
     Dosage: UNK
     Route: 065
  2. TELMISARTAN [Suspect]
     Active Substance: TELMISARTAN
     Dosage: 1 DF, QD
  3. TAMSULOSIN HYDROCHLORIDE [Suspect]
     Active Substance: TAMSULOSIN HYDROCHLORIDE
     Dosage: 1 DF, QD
  4. LEFLUNOMIDE [Suspect]
     Active Substance: LEFLUNOMIDE
     Dosage: UNK
  5. RABEPRAZOLE [Suspect]
     Active Substance: RABEPRAZOLE
     Dosage: UNK
  6. ALLOPURINOL SODIUM [Concomitant]
     Active Substance: ALLOPURINOL SODIUM
     Dosage: UNK
  7. BETAMETHASONE DIPROPIONATE\CALCIPOTRIENE [Concomitant]
     Active Substance: BETAMETHASONE DIPROPIONATE\CALCIPOTRIENE
     Dosage: UNK
  8. CANNABIS SATIVA FLOWERING TOP [Concomitant]
     Active Substance: CANNABIS SATIVA FLOWERING TOP
     Dosage: UNK
  9. CYMBALTA [Concomitant]
     Active Substance: DULOXETINE HYDROCHLORIDE
     Dosage: UNK
  10. DILAUDID [Concomitant]
     Active Substance: HYDROMORPHONE HYDROCHLORIDE
     Dosage: UNK
  11. ENBREL [Concomitant]
     Active Substance: ETANERCEPT
     Dosage: UNK
  12. EUCRISA [Concomitant]
     Active Substance: CRISABOROLE
     Dosage: UNK
     Route: 061
  13. GUSELKUMAB [Concomitant]
     Active Substance: GUSELKUMAB
     Dosage: UNK
  14. HUMIRA [Concomitant]
     Active Substance: ADALIMUMAB
     Dosage: UNK
     Route: 058
  15. METHOTREXATE SODIUM [Concomitant]
     Active Substance: METHOTREXATE SODIUM
     Dosage: UNK
  16. PREDNISONE ACETATE [Concomitant]
     Active Substance: PREDNISONE ACETATE
     Dosage: UNK
  17. LINAGLIPTIN [Concomitant]
     Active Substance: LINAGLIPTIN
     Dosage: UNK
  18. STELARA [Concomitant]
     Active Substance: USTEKINUMAB
     Dosage: UNK
     Route: 058
  19. TRESIBA [Concomitant]
     Active Substance: INSULIN DEGLUDEC
     Dosage: UNK
  20. ZOPICLONE [Concomitant]
     Active Substance: ZOPICLONE
     Dosage: UNK

REACTIONS (8)
  - COVID-19 [Unknown]
  - Drug intolerance [Unknown]
  - Ankle fracture [Unknown]
  - Joint dislocation [Unknown]
  - Shoulder fracture [Unknown]
  - Wrist fracture [Unknown]
  - Drug-induced liver injury [Unknown]
  - Shoulder arthroplasty [Unknown]
